FAERS Safety Report 5135400-8 (Version None)
Quarter: 2006Q4

REPORT INFORMATION
  Report Type: 
  Country: None (occurrence: None)
  Receive Date: 20061024
  Receipt Date: 20061024
  Transmission Date: 20070319
  Serious: Yes (Death)
  Sender: FDA-Public Use
  Company Number: None

PATIENT

DRUGS (1)
  1. EFFEXOR [Suspect]
     Dates: start: 20040217, end: 20050301

REACTIONS (6)
  - ABNORMAL BEHAVIOUR [None]
  - ADVERSE DRUG REACTION [None]
  - ALCOHOL USE [None]
  - COMPLETED SUICIDE [None]
  - FEAR [None]
  - SUICIDAL IDEATION [None]
